FAERS Safety Report 10239016 (Version 1)
Quarter: 2014Q2

REPORT INFORMATION
  Report Type: Spontaneous
  Country: US (occurrence: None)
  Receive Date: 20140613
  Receipt Date: 20140613
  Transmission Date: 20141212
  Serious: Yes (Other)
  Sender: FDA-Public Use
  Company Number: None

PATIENT
  Age: 53 Year
  Sex: Female
  Weight: 81.65 kg

DRUGS (1)
  1. ROBAXIN [Suspect]
     Indication: SPINAL FRACTURE
     Dosage: 1 YR AGO, AND THIS WEEK
     Route: 048
     Dates: start: 2013

REACTIONS (3)
  - Increased appetite [None]
  - Nausea [None]
  - Abdominal discomfort [None]
